FAERS Safety Report 15993017 (Version 1)
Quarter: 2019Q1

REPORT INFORMATION
  Report Type: Spontaneous
  Country: GB (occurrence: GB)
  Receive Date: 20190221
  Receipt Date: 20190221
  Transmission Date: 20190418
  Serious: Yes (Other)
  Sender: FDA-Public Use
  Company Number: GB-AMGEN-GBRSP2019026177

PATIENT
  Sex: Female

DRUGS (20)
  1. FOLINIC ACID [Suspect]
     Active Substance: LEUCOVORIN
     Indication: METASTASES TO LYMPH NODES
  2. IRINOTECAN [Suspect]
     Active Substance: IRINOTECAN
     Indication: METASTASES TO LYMPH NODES
  3. VECTIBIX [Suspect]
     Active Substance: PANITUMUMAB
     Indication: COLORECTAL CANCER METASTATIC
     Dosage: UNK, CYCLICAL (SIX CYCLES, DOSE TITRATION)
     Route: 065
     Dates: start: 201712
  4. VECTIBIX [Suspect]
     Active Substance: PANITUMUMAB
     Indication: METASTASES TO LYMPH NODES
  5. VECTIBIX [Suspect]
     Active Substance: PANITUMUMAB
     Indication: METASTASES TO LIVER
  6. 5 FU [Suspect]
     Active Substance: FLUOROURACIL
     Indication: METASTASES TO LIVER
  7. 5 FU [Suspect]
     Active Substance: FLUOROURACIL
     Indication: METASTASES TO BONE
  8. FOLINIC ACID [Suspect]
     Active Substance: LEUCOVORIN
     Indication: METASTASES TO BONE
  9. FOLINIC ACID [Suspect]
     Active Substance: LEUCOVORIN
     Indication: METASTASES TO ADRENALS
  10. IRINOTECAN [Suspect]
     Active Substance: IRINOTECAN
     Indication: METASTASES TO ADRENALS
  11. 5 FU [Suspect]
     Active Substance: FLUOROURACIL
     Indication: COLORECTAL CANCER METASTATIC
     Dosage: UNK UNK, CYCLICAL (SIX CYCLES, DOSE TITRATION)
     Route: 065
     Dates: start: 201712
  12. VECTIBIX [Suspect]
     Active Substance: PANITUMUMAB
     Indication: METASTASES TO BONE
  13. FOLINIC ACID [Suspect]
     Active Substance: LEUCOVORIN
     Indication: COLORECTAL CANCER METASTATIC
     Dosage: UNK UNK, CYCLICAL (SIX CYCLES, DOSE TITRATION)
     Route: 065
     Dates: start: 201712
  14. FOLINIC ACID [Suspect]
     Active Substance: LEUCOVORIN
     Indication: METASTASES TO LIVER
  15. VECTIBIX [Suspect]
     Active Substance: PANITUMUMAB
     Indication: METASTASES TO ADRENALS
  16. 5 FU [Suspect]
     Active Substance: FLUOROURACIL
     Indication: METASTASES TO LYMPH NODES
  17. 5 FU [Suspect]
     Active Substance: FLUOROURACIL
     Indication: METASTASES TO ADRENALS
  18. IRINOTECAN [Suspect]
     Active Substance: IRINOTECAN
     Indication: METASTASES TO LIVER
  19. IRINOTECAN [Suspect]
     Active Substance: IRINOTECAN
     Indication: METASTASES TO BONE
  20. IRINOTECAN [Suspect]
     Active Substance: IRINOTECAN
     Indication: COLORECTAL CANCER METASTATIC
     Dosage: UNK UNK, CYCLICAL (SIX CYCLES, DOSE TITRATION)
     Route: 065
     Dates: start: 201712

REACTIONS (25)
  - Neutropenia [Unknown]
  - Cystitis [Unknown]
  - Dysgeusia [Unknown]
  - Photosensitivity reaction [Unknown]
  - Rash pustular [Unknown]
  - Dry skin [Unknown]
  - Eye pain [Unknown]
  - Rash [Unknown]
  - Osteosclerosis [Unknown]
  - Self esteem decreased [Unknown]
  - Alopecia [Unknown]
  - Pain of skin [Unknown]
  - Hair growth abnormal [Unknown]
  - Stomatitis [Unknown]
  - Nausea [Unknown]
  - Psychiatric symptom [Unknown]
  - Visual impairment [Unknown]
  - Abdominal pain [Unknown]
  - Erythema [Unknown]
  - Skin fissures [Unknown]
  - Diarrhoea [Unknown]
  - Fatigue [Unknown]
  - Gastrointestinal disorder [Unknown]
  - Paronychia [Unknown]
  - Decreased appetite [Unknown]
